FAERS Safety Report 7410934-1 (Version None)
Quarter: 2011Q2

REPORT INFORMATION
  Report Type: 
  Country: None (occurrence: None)
  Receive Date: 20110405
  Receipt Date: 20110321
  Transmission Date: 20111010
  Serious: Yes (Hospitalization)
  Sender: FDA-Public Use
  Company Number: 2011MA002675

PATIENT
  Age: 11 Month
  Sex: Female

DRUGS (1)
  1. PROPRANOLOL HCL EXTENDED-RELEASE CAPSULES USP, 160MG (AELLC) (PROPRANO [Suspect]
     Indication: HAEMANGIOMA
     Dosage: 2 MG/KG;OD

REACTIONS (1)
  - HYPOTENSION [None]
